FAERS Safety Report 10343508 (Version 3)
Quarter: 2014Q3

REPORT INFORMATION
  Report Type: Spontaneous
  Country: TW (occurrence: None)
  Receive Date: 20140723
  Receipt Date: 20140902
  Transmission Date: 20150326
  Serious: Yes (Hospitalization, Other)
  Sender: FDA-Public Use
  Company Number: 2014MPI00819

PATIENT
  Age: 59 Year
  Sex: Female
  Weight: 50.8 kg

DRUGS (5)
  1. BRENTUXIMAB VEDOTIN [Suspect]
     Active Substance: BRENTUXIMAB VEDOTIN
     Indication: HODGKIN^S DISEASE
     Route: 042
     Dates: start: 20140325, end: 20140619
  2. DACARBAZINE (DACARBIZINE) INJECTION [Suspect]
     Active Substance: DACARBAZINE
     Indication: HODGKIN^S DISEASE
     Route: 042
     Dates: start: 20140325, end: 20140619
  3. VINBLASTINE (VINBLASTINE SULFATE) INJECTION [Suspect]
     Active Substance: VINBLASTINE
     Indication: HODGKIN^S DISEASE
     Route: 042
     Dates: start: 20140325, end: 20140619
  4. DOXORUBICIN (DOXORUBICIN) INJECTION [Suspect]
     Active Substance: DOXORUBICIN
     Indication: HODGKIN^S DISEASE
     Route: 042
     Dates: start: 20140325, end: 20140619
  5. METFORMIN [Concomitant]
     Active Substance: METFORMIN HYDROCHLORIDE

REACTIONS (3)
  - Pneumonia [None]
  - White blood cell count decreased [None]
  - Herpes virus infection [None]

NARRATIVE: CASE EVENT DATE: 20140630
